FAERS Safety Report 4341436-7 (Version None)
Quarter: 2004Q2

REPORT INFORMATION
  Report Type: 
  Country: None (occurrence: None)
  Receive Date: 20040415
  Receipt Date: 20040402
  Transmission Date: 20050107
  Serious: Yes (Hospitalization)
  Sender: FDA-Public Use
  Company Number: 2004018720

PATIENT
  Age: 30 Year
  Sex: Male

DRUGS (1)
  1. VFEND [Suspect]
     Indication: ASPERGILLOSIS
     Dosage: INTRAVENOUS
     Route: 042
     Dates: start: 20040201

REACTIONS (2)
  - HALLUCINATION [None]
  - HEMIPARESIS [None]
